FAERS Safety Report 9540236 (Version 1)
Quarter: 2013Q3

REPORT INFORMATION
  Report Type: Spontaneous
  Country: US (occurrence: US)
  Receive Date: 20130920
  Receipt Date: 20130920
  Transmission Date: 20140515
  Serious: Yes (Other)
  Sender: FDA-Public Use
  Company Number: US-009507513-1309USA006739

PATIENT
  Sex: Female

DRUGS (5)
  1. PROVENTIL [Suspect]
     Indication: ASTHMA
     Dosage: AS NEEDED
     Route: 048
  2. PROVENTIL [Suspect]
     Dosage: AS NEEDED
     Route: 048
  3. PROVENTIL [Suspect]
     Dosage: AS NEEDED
     Dates: start: 1973
  4. ADVAIR [Concomitant]
  5. [THERAPY UNSPECIFIED] [Concomitant]

REACTIONS (7)
  - Breast cancer [Unknown]
  - Dyspnoea [Unknown]
  - Wheezing [Unknown]
  - Insomnia [Unknown]
  - Middle insomnia [Unknown]
  - Product quality issue [Unknown]
  - Drug administered to patient of inappropriate age [Unknown]
